FAERS Safety Report 16653527 (Version 3)
Quarter: 2019Q3

REPORT INFORMATION
  Report Type: Spontaneous
  Country: RU (occurrence: RU)
  Receive Date: 20190731
  Receipt Date: 20190830
  Transmission Date: 20191004
  Serious: Yes (Death, Other)
  Sender: FDA-Public Use
  Company Number: RU-GILEAD-2019-0421119

PATIENT
  Age: 60 Year
  Sex: Male
  Weight: 103 kg

DRUGS (5)
  1. RIFAXIMIN. [Concomitant]
     Active Substance: RIFAXIMIN
  2. DACLATASVIR. [Concomitant]
     Active Substance: DACLATASVIR
  3. DUPHALAC EASY [Concomitant]
  4. SOVALDI [Suspect]
     Active Substance: SOFOSBUVIR
     Indication: HEPATITIS C
     Dosage: UNK
     Route: 065
     Dates: start: 20180606, end: 201806
  5. TORASEMID [Concomitant]
     Active Substance: TORSEMIDE

REACTIONS (2)
  - Cardiac failure [Fatal]
  - Off label use [Recovered/Resolved]

NARRATIVE: CASE EVENT DATE: 20180630
